FAERS Safety Report 23298792 (Version 1)
Quarter: 2023Q4

REPORT INFORMATION
  Report Type: Report from Study
  Country: US (occurrence: US)
  Receive Date: 20231214
  Receipt Date: 20231214
  Transmission Date: 20240109
  Serious: Yes (Hospitalization)
  Sender: FDA-Public Use
  Company Number: US-JNJFOC-20230965201

PATIENT
  Age: 60 Year
  Sex: Male
  Weight: 77 kg

DRUGS (8)
  1. BOSENTAN [Suspect]
     Active Substance: BOSENTAN
     Indication: Pulmonary arterial hypertension
     Dosage: TAKE 4 TABLET BY MOUTH TWICE DAILY
     Route: 048
     Dates: start: 20230403
  2. TYLENOL [Suspect]
     Active Substance: ACETAMINOPHEN
     Indication: Headache
     Route: 065
  3. REMODULIN [Suspect]
     Active Substance: TREPROSTINIL
     Indication: Pulmonary arterial hypertension
     Route: 058
     Dates: start: 20230315
  4. REMODULIN [Suspect]
     Active Substance: TREPROSTINIL
     Route: 058
     Dates: start: 20230921
  5. ADEMPAS [Concomitant]
     Active Substance: RIOCIGUAT
  6. POTASSIUM [Concomitant]
     Active Substance: POTASSIUM
  7. MAGNESIUM [Concomitant]
     Active Substance: MAGNESIUM
  8. GAS-X MAX STRENGTH [Concomitant]

REACTIONS (8)
  - Generalised oedema [Unknown]
  - Injection site haemorrhage [Unknown]
  - Vomiting [Recovering/Resolving]
  - Migraine [Recovering/Resolving]
  - Therapy cessation [Unknown]
  - Liver disorder [Unknown]
  - Renal disorder [Unknown]
  - Flatulence [Unknown]

NARRATIVE: CASE EVENT DATE: 20230922
